FAERS Safety Report 9171281 (Version 9)
Quarter: 2019Q3

REPORT INFORMATION
  Report Type: Report from Study
  Country: ES (occurrence: ES)
  Receive Date: 20130319
  Receipt Date: 20190916
  Transmission Date: 20191005
  Serious: Yes (Hospitalization, Other)
  Sender: FDA-Public Use
  Company Number: ES-CELGENEUS-144-21660-12120245

PATIENT

DRUGS (5)
  1. ABRAXANE [Suspect]
     Active Substance: PACLITAXEL
     Indication: BREAST CANCER
     Dosage: 150 MG/M2
     Route: 041
  2. ABRAXANE [Suspect]
     Active Substance: PACLITAXEL
     Dosage: 150 MG/M2
     Route: 041
  3. ABRAXANE [Suspect]
     Active Substance: PACLITAXEL
     Route: 041
  4. GEMCITABINE. [Concomitant]
     Active Substance: GEMCITABINE
     Indication: PANCREATIC CARCINOMA
     Route: 065
  5. ABRAXANE [Suspect]
     Active Substance: PACLITAXEL
     Dosage: 123
     Route: 041

REACTIONS (38)
  - Blood creatinine increased [Unknown]
  - Neurotoxicity [Unknown]
  - Fatigue [Unknown]
  - Infection [Unknown]
  - Onychomadesis [Unknown]
  - Pain of skin [Unknown]
  - Bone pain [Unknown]
  - Vomiting [Unknown]
  - Muscular weakness [Unknown]
  - Colitis [Recovered/Resolved]
  - Insomnia [Unknown]
  - Hyperkalaemia [Unknown]
  - Peripheral sensory neuropathy [Not Recovered/Not Resolved]
  - Infection [Recovered/Resolved]
  - Device related infection [Unknown]
  - Leukopenia [Unknown]
  - Abdominal pain [Unknown]
  - Back pain [Unknown]
  - Gastrointestinal toxicity [Unknown]
  - Diarrhoea [Unknown]
  - Ear infection [Unknown]
  - Pain in extremity [Unknown]
  - Multiple sclerosis relapse [Recovered/Resolved]
  - Alopecia [Unknown]
  - Decreased appetite [Unknown]
  - Flushing [Unknown]
  - Nausea [Unknown]
  - Pruritus [Unknown]
  - Pneumonia [Unknown]
  - Neutropenia [Unknown]
  - Constipation [Unknown]
  - Anaemia [Unknown]
  - Peripheral motor neuropathy [Unknown]
  - Arthralgia [Unknown]
  - Lung disorder [Unknown]
  - Exfoliative rash [Unknown]
  - Menstruation irregular [Unknown]
  - Myalgia [Unknown]

NARRATIVE: CASE EVENT DATE: 20120813
